FAERS Safety Report 23558817 (Version 5)
Quarter: 2024Q4

REPORT INFORMATION
  Report Type: Spontaneous
  Country: CO (occurrence: CO)
  Receive Date: 20240223
  Receipt Date: 20241025
  Transmission Date: 20250115
  Serious: Yes (Other)
  Sender: REGENERON
  Company Number: CO-SA-SAC20240221000296

PATIENT
  Age: 85 Year
  Sex: Female

DRUGS (1)
  1. PRALUENT [Suspect]
     Active Substance: ALIROCUMAB
     Indication: Type IIa hyperlipidaemia
     Dosage: 75 MG, Q15D
     Route: 058
     Dates: start: 2023

REACTIONS (12)
  - Corneal perforation [Unknown]
  - Macular rupture [Unknown]
  - Eye irritation [Unknown]
  - Conjunctivitis [Unknown]
  - Visual impairment [Unknown]
  - Memory impairment [Unknown]
  - Dry skin [Recovered/Resolved]
  - Skin burning sensation [Recovered/Resolved]
  - Lacrimation increased [Recovered/Resolved]
  - Blood glucose abnormal [Unknown]
  - Vision blurred [Unknown]
  - Pruritus [Recovered/Resolved]

NARRATIVE: CASE EVENT DATE: 20231201
